FAERS Safety Report 23976336 (Version 1)
Quarter: 2024Q2

REPORT INFORMATION
  Report Type: Spontaneous
  Country: US (occurrence: None)
  Receive Date: 20240613
  Receipt Date: 20240613
  Transmission Date: 20240716
  Serious: Yes (Hospitalization, Other)
  Sender: FDA-Public Use
  Company Number: None

PATIENT
  Age: 77 Year
  Sex: Male
  Weight: 72 kg

DRUGS (2)
  1. CEFEPIME [Suspect]
     Active Substance: CEFEPIME HYDROCHLORIDE
     Indication: Pneumonia
     Dosage: 2 G GRAM(S) EVERY TREATMENT INTRAVENOUS DRIP ?
     Route: 041
     Dates: start: 20240527, end: 20240531
  2. CEFEPIME [Suspect]
     Active Substance: CEFEPIME HYDROCHLORIDE
     Indication: Pneumonia
     Dosage: 2 G GRAM(S) ONCE INTRAVENOUS DRIP ?
     Route: 041
     Dates: start: 20240531, end: 20240531

REACTIONS (5)
  - Dialysis [None]
  - Toxic encephalopathy [None]
  - Toxicity to various agents [None]
  - Lethargy [None]
  - Mental status changes [None]

NARRATIVE: CASE EVENT DATE: 20240602
